FAERS Safety Report 17758237 (Version 1)
Quarter: 2020Q2

REPORT INFORMATION
  Report Type: Report from Study
  Country: US (occurrence: US)
  Receive Date: 20200507
  Receipt Date: 20200507
  Transmission Date: 20200714
  Serious: Yes (Other)
  Sender: FDA-Public Use
  Company Number: US-BRISTOL-MYERS SQUIBB COMPANY-BMS-2019-045529

PATIENT
  Sex: Female
  Weight: 88.4 kg

DRUGS (1)
  1. ABATACEPT [Suspect]
     Active Substance: ABATACEPT
     Indication: ARTHRITIS
     Dosage: UNK, ROUTE: SELF INJECTION
     Route: 050
     Dates: start: 2018

REACTIONS (3)
  - Pain [Unknown]
  - Arthropathy [Unknown]
  - Malaise [Unknown]
